FAERS Safety Report 20723710 (Version 1)
Quarter: 2022Q2

REPORT INFORMATION
  Report Type: Spontaneous
  Country: CZ (occurrence: CZ)
  Receive Date: 20220419
  Receipt Date: 20220419
  Transmission Date: 20220721
  Serious: Yes (Other)
  Sender: FDA-Public Use
  Company Number: CZ-UCBSA-2022021969

PATIENT
  Sex: Male

DRUGS (5)
  1. CETIRIZINE HYDROCHLORIDE [Suspect]
     Active Substance: CETIRIZINE HYDROCHLORIDE
     Indication: Product used for unknown indication
     Dosage: UNK
     Route: 065
  2. COMIRNATY [Suspect]
     Active Substance: TOZINAMERAN
     Indication: Immunisation
     Dosage: 30 MICROGRAM, ONE TIME DOSE
     Route: 030
     Dates: start: 20210614, end: 20210614
  3. SEROPRAM (CITALOPRAM HYDROBROMIDE) [Concomitant]
     Active Substance: CITALOPRAM HYDROBROMIDE
     Indication: Product used for unknown indication
     Dosage: 20 MILLIGRAM, UNK
     Route: 048
  4. TRAZODONE [Concomitant]
     Active Substance: TRAZODONE HYDROCHLORIDE
     Indication: Product used for unknown indication
     Dosage: UNK
     Route: 065
  5. OMEPRAZOLE [Concomitant]
     Active Substance: OMEPRAZOLE
     Indication: Product used for unknown indication
     Dosage: 20 MILLIGRAM, UNK
     Route: 048

REACTIONS (7)
  - Loss of consciousness [Unknown]
  - Rash [Unknown]
  - Asthenia [Unknown]
  - Injection site pain [Recovered/Resolved]
  - Fatigue [Recovered/Resolved]
  - Head titubation [Recovered/Resolved]
  - COVID-19 immunisation [Unknown]

NARRATIVE: CASE EVENT DATE: 20210614
